FAERS Safety Report 14605300 (Version 6)
Quarter: 2019Q1

REPORT INFORMATION
  Report Type: Report from Study
  Country: US (occurrence: US)
  Receive Date: 20180306
  Receipt Date: 20190301
  Transmission Date: 20190417
  Serious: Yes (Hospitalization)
  Sender: FDA-Public Use
  Company Number: US-ACTELION-A-NJ2018-168567

PATIENT
  Sex: Female
  Weight: 77.1 kg

DRUGS (4)
  1. UPTRAVI [Suspect]
     Active Substance: SELEXIPAG
     Dosage: 200 MCG, BID
     Route: 048
  2. ADCIRCA [Concomitant]
     Active Substance: TADALAFIL
  3. UPTRAVI [Suspect]
     Active Substance: SELEXIPAG
     Dosage: 800 MCG, BID
     Route: 048
  4. UPTRAVI [Suspect]
     Active Substance: SELEXIPAG
     Indication: PULMONARY HYPERTENSION
     Dosage: 400 MCG, BID
     Route: 048

REACTIONS (5)
  - Cerebrovascular accident [Unknown]
  - Memory impairment [Unknown]
  - Hospitalisation [Unknown]
  - Rehabilitation therapy [Unknown]
  - Cardiac failure congestive [Unknown]
